FAERS Safety Report 9410881 (Version 2)
Quarter: 2013Q4

REPORT INFORMATION
  Report Type: Spontaneous
  Country: US (occurrence: US)
  Receive Date: 20130719
  Receipt Date: 20131004
  Transmission Date: 20140711
  Serious: Yes (Other)
  Sender: FDA-Public Use
  Company Number: CHPA2013US011190

PATIENT
  Age: 76 Year
  Sex: Female

DRUGS (3)
  1. EXCEDRIN EXTRA STRENGTH [Suspect]
     Indication: PAIN
     Dosage: UNK, QD
     Route: 048
     Dates: end: 201111
  2. NEXIUM//ESOMEPRAZOLE SODIUM [Concomitant]
     Dosage: UNK, QD
     Dates: start: 2005
  3. TRAMADOL HCL [Concomitant]
     Indication: PAIN
     Dosage: 2 UNK, TID

REACTIONS (6)
  - Ulcer [Recovered/Resolved]
  - Rheumatoid arthritis [Unknown]
  - Scar [Unknown]
  - Vomiting [Recovered/Resolved]
  - Therapeutic response unexpected [Unknown]
  - Incorrect drug administration duration [Unknown]
